FAERS Safety Report 7913522-3 (Version None)
Quarter: 2011Q4

REPORT INFORMATION
  Report Type: 
  Country: None (occurrence: None)
  Receive Date: 20111110
  Receipt Date: 20111011
  Transmission Date: 20120403
  Serious: Yes (Hospitalization)
  Sender: FDA-Public Use
  Company Number: US-ZYDUS-000187

PATIENT
  Age: 48 Year

DRUGS (1)
  1. LAMOTRIGINE [Suspect]
     Dosage: 7.50-G-

REACTIONS (5)
  - CIRCULATORY COLLAPSE [None]
  - OVERDOSE [None]
  - STATUS EPILEPTICUS [None]
  - CARDIAC ARREST [None]
  - TACHYCARDIA [None]
